FAERS Safety Report 8535364-0 (Version None)
Quarter: 2012Q3

REPORT INFORMATION
  Report Type: 
  Country: None (occurrence: None)
  Receive Date: 20120725
  Receipt Date: 20120717
  Transmission Date: 20120928
  Serious: No
  Sender: FDA-Public Use
  Company Number: US-BIOGENIDEC-2012BI026494

PATIENT
  Sex: Female

DRUGS (2)
  1. BOTOX [Concomitant]
     Indication: MIGRAINE
  2. TYSABRI [Suspect]
     Indication: MULTIPLE SCLEROSIS
     Route: 042
     Dates: start: 20120109, end: 20120201

REACTIONS (3)
  - URINARY TRACT INFECTION [None]
  - MULTIPLE SCLEROSIS RELAPSE [None]
  - FATIGUE [None]
